FAERS Safety Report 17194504 (Version 1)
Quarter: 2019Q4

REPORT INFORMATION
  Report Type: Spontaneous
  Country: CA (occurrence: CA)
  Receive Date: 20191224
  Receipt Date: 20191224
  Transmission Date: 20200122
  Serious: Yes (Life-Threatening, Hospitalization, Other)
  Sender: FDA-Public Use
  Company Number: CA-BRISTOL-MYERS SQUIBB COMPANY-BMS-2019-120819

PATIENT
  Age: 71 Year
  Sex: Male
  Weight: 76 kg

DRUGS (8)
  1. LIPITOR [Concomitant]
     Active Substance: ATORVASTATIN CALCIUM
     Indication: PRODUCT USED FOR UNKNOWN INDICATION
     Route: 065
  2. PROPRANOLOL [Concomitant]
     Active Substance: PROPRANOLOL HYDROCHLORIDE
     Indication: PRODUCT USED FOR UNKNOWN INDICATION
     Route: 065
  3. OPDIVO [Suspect]
     Active Substance: NIVOLUMAB
     Indication: RENAL CANCER STAGE IV
     Dosage: 240 MILLIGRAM, Q3WK
     Route: 042
  4. NORVASC [Concomitant]
     Active Substance: AMLODIPINE BESYLATE
     Indication: PRODUCT USED FOR UNKNOWN INDICATION
     Route: 065
  5. PANTOLOC [PANTOPRAZOLE] [Concomitant]
     Active Substance: PANTOPRAZOLE SODIUM
     Indication: PRODUCT USED FOR UNKNOWN INDICATION
     Route: 065
  6. ATIVAN [Concomitant]
     Active Substance: LORAZEPAM
     Indication: PRODUCT USED FOR UNKNOWN INDICATION
     Route: 065
  7. LOSARTAN. [Concomitant]
     Active Substance: LOSARTAN
     Indication: PRODUCT USED FOR UNKNOWN INDICATION
     Route: 065
  8. YERVOY [Suspect]
     Active Substance: IPILIMUMAB
     Indication: RENAL CANCER STAGE IV
     Dosage: 87 MILLIGRAM, Q3WK
     Route: 042

REACTIONS (14)
  - Acidosis hyperchloraemic [Recovering/Resolving]
  - Physical deconditioning [Recovering/Resolving]
  - Gastrointestinal disorder [Recovering/Resolving]
  - Gastrointestinal anastomotic complication [Recovering/Resolving]
  - Intentional product use issue [Unknown]
  - Faeces discoloured [Recovering/Resolving]
  - Gastrointestinal ulcer haemorrhage [Recovering/Resolving]
  - Rectal haemorrhage [Recovering/Resolving]
  - Acute kidney injury [Recovering/Resolving]
  - Diarrhoea [Recovering/Resolving]
  - Feeding disorder [Recovering/Resolving]
  - Weight decreased [Recovering/Resolving]
  - Disseminated intravascular coagulation [Recovering/Resolving]
  - Haemorrhage [Recovering/Resolving]
